FAERS Safety Report 5221110-5 (Version None)
Quarter: 2007Q1

REPORT INFORMATION
  Report Type: 
  Country: None (occurrence: None)
  Receive Date: 20070126
  Receipt Date: 20060207
  Transmission Date: 20070707
  Serious: No
  Sender: FDA-Public Use
  Company Number: US-BRISTOL-MYERS SQUIBB COMPANY-13274907

PATIENT
  Sex: Female
  Weight: 68 kg

DRUGS (2)
  1. CEFZIL [Suspect]
     Indication: SINUSITIS
     Route: 048
     Dates: start: 20060206, end: 20060201
  2. VITAMIN CAP [Concomitant]

REACTIONS (4)
  - ASTHENIA [None]
  - DIARRHOEA [None]
  - FATIGUE [None]
  - VOMITING [None]
